FAERS Safety Report 9376362 (Version 2)
Quarter: 2013Q3

REPORT INFORMATION
  Report Type: Spontaneous
  Country: DE (occurrence: DE)
  Receive Date: 20130701
  Receipt Date: 20130925
  Transmission Date: 20140515
  Serious: Yes (Other)
  Sender: FDA-Public Use
  Company Number: DE-ROCHE-1241745

PATIENT
  Age: 50 Year
  Sex: Female
  Weight: 60 kg

DRUGS (3)
  1. PERJETA [Suspect]
     Indication: BREAST CANCER METASTATIC
     Dosage: 840/420 MG
     Route: 042
     Dates: start: 20130404, end: 201306
  2. HERCEPTIN [Suspect]
     Indication: BREAST CANCER METASTATIC
     Route: 042
     Dates: start: 201301, end: 201306
  3. DOCETAXEL [Concomitant]
     Indication: BREAST CANCER METASTATIC
     Route: 065
     Dates: start: 20130404, end: 201306

REACTIONS (3)
  - Pulmonary fibrosis [Unknown]
  - Pneumonitis [Recovering/Resolving]
  - Cough [Unknown]
